FAERS Safety Report 18582195 (Version 1)
Quarter: 2020Q4

REPORT INFORMATION
  Report Type: Spontaneous
  Country: US (occurrence: US)
  Receive Date: 20201203
  Receipt Date: 20201203
  Transmission Date: 20210114
  Serious: Yes (Hospitalization)
  Sender: FDA-Public Use
  Company Number: None

PATIENT
  Age: 64 Year
  Sex: Male
  Weight: 107 kg

DRUGS (4)
  1. ACALABRUTINIB. [Suspect]
     Active Substance: ACALABRUTINIB
     Dates: end: 20201117
  2. BENDAMUSTINE HYDROCHLORIDE. [Suspect]
     Active Substance: BENDAMUSTINE HYDROCHLORIDE
     Dates: end: 20201014
  3. RITUXIMAB (MOAB C2B8 ANTI CD 20, CHIMERIC) [Suspect]
     Active Substance: RITUXIMAB
     Dates: end: 20201111
  4. CYTARABINE. [Suspect]
     Active Substance: CYTARABINE
     Dates: end: 20201113

REACTIONS (3)
  - Toxicity to various agents [None]
  - Neutropenia [None]
  - Pneumonia [None]

NARRATIVE: CASE EVENT DATE: 20201119
